FAERS Safety Report 5515512-7 (Version None)
Quarter: 2007Q4

REPORT INFORMATION
  Report Type: 
  Country: None (occurrence: None)
  Receive Date: 20071113
  Receipt Date: 20070313
  Transmission Date: 20080405
  Serious: No
  Sender: FDA-Public Use
  Company Number: A0643051A

PATIENT
  Sex: Female

DRUGS (2)
  1. COREG [Suspect]
     Indication: DRUG USE FOR UNKNOWN INDICATION
  2. MULTIPLE MEDICATIONS [Concomitant]

REACTIONS (2)
  - SWOLLEN TONGUE [None]
  - TONGUE BLACK HAIRY [None]
